FAERS Safety Report 6208186-3 (Version None)
Quarter: 2009Q2

REPORT INFORMATION
  Report Type: 
  Country: None (occurrence: None)
  Receive Date: 20090529
  Receipt Date: 20090520
  Transmission Date: 20091009
  Serious: Yes (Disabling)
  Sender: FDA-Public Use
  Company Number: PHHY2009FR19485

PATIENT
  Age: 76 Year
  Sex: Female

DRUGS (1)
  1. ACLASTA [Suspect]
     Indication: OSTEOPOROSIS
     Dosage: UNK
     Dates: start: 20090201

REACTIONS (8)
  - ARTHRALGIA [None]
  - INFLAMMATION [None]
  - MOBILITY DECREASED [None]
  - MYALGIA [None]
  - NAIL DISCOLOURATION [None]
  - NAIL DISORDER [None]
  - PAIN IN EXTREMITY [None]
  - VASCULITIS [None]
